FAERS Safety Report 7381757-7 (Version None)
Quarter: 2011Q1

REPORT INFORMATION
  Report Type: 
  Country: None (occurrence: None)
  Receive Date: 20110329
  Receipt Date: 20110317
  Transmission Date: 20110831
  Serious: Yes (Death, Life-Threatening, Hospitalization)
  Sender: FDA-Public Use
  Company Number: IT-CELGENEUS-083-21880-08090139

PATIENT
  Sex: Female

DRUGS (8)
  1. AMOXICILLIN [Concomitant]
     Dosage: 2 GRAM
     Route: 065
  2. MELPHALAN [Suspect]
     Indication: MULTIPLE MYELOMA
     Route: 065
  3. SOLDESAM [Suspect]
     Indication: MULTIPLE MYELOMA
     Dosage: 40 MILLIGRAM
     Route: 048
     Dates: start: 20080823, end: 20080829
  4. OMEPRAZOLE [Concomitant]
     Dosage: 40 MILLIGRAM
     Route: 065
  5. REVLIMID [Suspect]
     Indication: MULTIPLE MYELOMA
     Dosage: 25 MILLIGRAM
     Route: 048
     Dates: start: 20080823, end: 20080829
  6. ASPIRIN [Concomitant]
     Dosage: 100 MILLIGRAM
     Route: 065
  7. CLARITHROMYCIN [Concomitant]
     Dosage: 1000 MILLIGRAM
     Route: 065
  8. PREDNISONE [Suspect]
     Indication: MULTIPLE MYELOMA
     Route: 065

REACTIONS (6)
  - HYPERCALCAEMIA [None]
  - TUMOUR FLARE [None]
  - PNEUMONIA [None]
  - ACUTE RESPIRATORY DISTRESS SYNDROME [None]
  - RENAL FAILURE ACUTE [None]
  - PYREXIA [None]
